FAERS Safety Report 8443865-9 (Version None)
Quarter: 2012Q2

REPORT INFORMATION
  Report Type: 
  Country: None (occurrence: None)
  Receive Date: 20120618
  Receipt Date: 20120606
  Transmission Date: 20120825
  Serious: Yes (Hospitalization, Other)
  Sender: FDA-Public Use
  Company Number: FR-JNJFOC-20120604294

PATIENT
  Sex: Female
  Weight: 52 kg

DRUGS (6)
  1. TRAVOPROST [Concomitant]
  2. REMICADE [Suspect]
     Route: 042
     Dates: start: 20111101
  3. REMICADE [Suspect]
     Indication: CROHN'S DISEASE
     Route: 042
     Dates: start: 20120104
  4. TIMOLOL MALEATE [Concomitant]
  5. REMICADE [Suspect]
     Route: 042
     Dates: start: 20090515
  6. REMICADE [Suspect]
     Route: 042
     Dates: start: 20120606

REACTIONS (1)
  - CROHN'S DISEASE [None]
